FAERS Safety Report 5695540-1 (Version None)
Quarter: 2008Q2

REPORT INFORMATION
  Report Type: 
  Country: None (occurrence: None)
  Receive Date: 20080407
  Receipt Date: 20080327
  Transmission Date: 20081010
  Serious: Yes (Death, Hospitalization, Other)
  Sender: FDA-Public Use
  Company Number: FR-BRISTOL-MYERS SQUIBB COMPANY-13838172

PATIENT
  Age: 52 Year
  Sex: Male
  Weight: 55 kg

DRUGS (6)
  1. ERBITUX [Suspect]
     Indication: LUNG SQUAMOUS CELL CARCINOMA STAGE III
     Route: 042
     Dates: start: 20061011
  2. CISPLATIN [Suspect]
     Indication: LUNG SQUAMOUS CELL CARCINOMA STAGE III
     Dosage: 3 DAYS/CYCLE; 1 CYCLE EVERY 21 DAYS. LAST ADMINISTRATION ON 26, 27 + 28-SEP-2006.
     Route: 042
     Dates: start: 20060724
  3. ZOPHREN [Concomitant]
     Dosage: 8 MG, DURING 3 DAYS.
     Route: 048
  4. SOLU-MEDROL [Concomitant]
     Dosage: 80 MG, DURING 3 DAYS.
  5. GRANOCYTE [Concomitant]
     Indication: APLASIA
     Route: 058
     Dates: start: 20060930, end: 20061001
  6. TAXOTERE [Concomitant]
     Indication: SQUAMOUS CELL CARCINOMA
     Dosage: 50 MG, 3 DAYS/CYCLE; 1 CYCLE EVERY 21 DAYS.
     Route: 042
     Dates: start: 20060724, end: 20060928

REACTIONS (7)
  - ANAEMIA [None]
  - DEHYDRATION [None]
  - DIARRHOEA [None]
  - FEBRILE NEUTROPENIA [None]
  - HYPONATRAEMIA [None]
  - MALIGNANT NEOPLASM PROGRESSION [None]
  - RENAL FAILURE ACUTE [None]
